FAERS Safety Report 6907746-1 (Version None)
Quarter: 2010Q3

REPORT INFORMATION
  Report Type: 
  Country: None (occurrence: None)
  Receive Date: 20100716
  Receipt Date: 20090618
  Transmission Date: 20110219
  Serious: Yes (Other)
  Sender: FDA-Public Use
  Company Number: 2009203778

PATIENT
  Sex: Female
  Weight: 91.6 kg

DRUGS (2)
  1. CELEBREX [Suspect]
     Indication: OSTEOARTHRITIS
     Dosage: ORAL
     Route: 048
  2. IBUPROFEN [Suspect]

REACTIONS (2)
  - HEARING IMPAIRED [None]
  - MALAISE [None]
